FAERS Safety Report 17052945 (Version 2)
Quarter: 2020Q1

REPORT INFORMATION
  Report Type: Spontaneous
  Country: US (occurrence: US)
  Receive Date: 20191120
  Receipt Date: 20200107
  Transmission Date: 20200409
  Serious: Yes (Death)
  Sender: FDA-Public Use
  Company Number: US-KARYOPHARM-2019KPT000786

PATIENT

DRUGS (1)
  1. XPOVIO [Suspect]
     Active Substance: SELINEXOR
     Indication: PRODUCT USED FOR UNKNOWN INDICATION
     Dosage: 100 MG, WEEKLY
     Route: 048

REACTIONS (6)
  - Nausea [Unknown]
  - Laboratory test abnormal [Unknown]
  - Fatigue [Unknown]
  - Mental status changes [Unknown]
  - Death [Fatal]
  - Decreased appetite [Unknown]
